FAERS Safety Report 9830513 (Version 1)
Quarter: 2014Q1

REPORT INFORMATION
  Report Type: Spontaneous
  Country: DE (occurrence: DE)
  Receive Date: 20140120
  Receipt Date: 20140120
  Transmission Date: 20141002
  Serious: Yes (Other)
  Sender: FDA-Public Use
  Company Number: DE-GE HEALTHCARE MEDICAL DIAGNOSTICS-VISP-PR-1401S-0013

PATIENT
  Age: 85 Year
  Sex: Female
  Weight: 85 kg

DRUGS (4)
  1. VISIPAQUE [Suspect]
     Indication: CHEST PAIN
     Route: 042
     Dates: start: 20140109, end: 20140109
  2. VISIPAQUE [Suspect]
     Indication: DYSPNOEA
  3. VISIPAQUE [Suspect]
     Indication: CORONARY ARTERY DISEASE
  4. VISIPAQUE [Suspect]
     Indication: DIAGNOSTIC PROCEDURE

REACTIONS (3)
  - Swelling [Recovered/Resolved]
  - Pruritus [Recovered/Resolved]
  - Erythema [Recovered/Resolved]
